FAERS Safety Report 6112430-0 (Version None)
Quarter: 2009Q1

REPORT INFORMATION
  Report Type: 
  Country: None (occurrence: None)
  Receive Date: 20090312
  Receipt Date: 20090225
  Transmission Date: 20090719
  Serious: Yes (Hospitalization, Other)
  Sender: FDA-Public Use
  Company Number: PHEH2009US00748

PATIENT
  Sex: Female
  Weight: 58.2 kg

DRUGS (1)
  1. NEORAL [Suspect]
     Indication: SYSTEMIC SCLEROSIS
     Dosage: 125 MG, QD
     Route: 048
     Dates: start: 20081001

REACTIONS (2)
  - GASTROOESOPHAGEAL REFLUX DISEASE [None]
  - PNEUMONIA ASPIRATION [None]
